FAERS Safety Report 7040504-9 (Version None)
Quarter: 2010Q4

REPORT INFORMATION
  Report Type: 
  Country: None (occurrence: None)
  Receive Date: 20101008
  Receipt Date: 20101008
  Transmission Date: 20110411
  Serious: Yes (Life-Threatening, Hospitalization, Other)
  Sender: FDA-Public Use
  Company Number: None

PATIENT
  Age: 61 Year
  Sex: Female
  Weight: 113.3993 kg

DRUGS (1)
  1. EVISTA [Suspect]
     Indication: BREAST DISORDER
     Dosage: 60MG 1X A DAY BY MOUTH
     Route: 048
     Dates: end: 20100601

REACTIONS (4)
  - JOINT SWELLING [None]
  - PULMONARY EMBOLISM [None]
  - PULMONARY THROMBOSIS [None]
  - THROMBOSIS [None]
